FAERS Safety Report 11443848 (Version 1)
Quarter: 2015Q3

REPORT INFORMATION
  Report Type: Spontaneous
  Country: FR (occurrence: FR)
  Receive Date: 20150901
  Receipt Date: 20150901
  Transmission Date: 20151125
  Serious: Yes (Hospitalization)
  Sender: FDA-Public Use
  Company Number: FR-AMGEN-FRASP2015088331

PATIENT
  Age: 77 Year
  Sex: Male

DRUGS (4)
  1. HOSPIRA OXALIPLATIN [Concomitant]
     Indication: ADENOCARCINOMA OF COLON
     Dosage: 120 MG, 1 IN 1 CYCLE
     Route: 042
     Dates: start: 20150311
  2. FOLINIC ACID [Concomitant]
     Active Substance: LEUCOVORIN
     Indication: ADENOCARCINOMA OF COLON
     Dosage: 350 MG, 1 IN 1 CYCLE
     Route: 042
     Dates: start: 20150611
  3. FLUOROURACIL ACCORD [Concomitant]
     Active Substance: FLUOROURACIL
     Indication: ADENOCARCINOMA OF COLON
     Dosage: 3900 MG, 1 IN 1 CYCLE
     Route: 042
     Dates: start: 20150311
  4. VECTIBIX [Suspect]
     Active Substance: PANITUMUMAB
     Indication: ADENOCARCINOMA OF COLON
     Dosage: 20 MG/ML, CYCLICAL
     Route: 042
     Dates: start: 20150323

REACTIONS (4)
  - General physical health deterioration [Recovering/Resolving]
  - Pancytopenia [Recovering/Resolving]
  - Asthenia [Recovering/Resolving]
  - Decreased appetite [Recovering/Resolving]

NARRATIVE: CASE EVENT DATE: 201504
